FAERS Safety Report 12615298 (Version 3)
Quarter: 2016Q4

REPORT INFORMATION
  Report Type: Spontaneous
  Country: US (occurrence: US)
  Receive Date: 20160802
  Receipt Date: 20161024
  Transmission Date: 20170207
  Serious: Yes (Hospitalization, Other)
  Sender: FDA-Public Use
  Company Number: US-BAYER-2016-146611

PATIENT
  Age: 67 Year
  Sex: Male
  Weight: 92.63 kg

DRUGS (12)
  1. ZOLADEX [Concomitant]
     Active Substance: GOSERELIN ACETATE
     Indication: PROSTATE CANCER
     Dosage: UNK
     Dates: start: 2010
  2. BICALUTAMIDE. [Concomitant]
     Active Substance: BICALUTAMIDE
  3. XGEVA [Concomitant]
     Active Substance: DENOSUMAB
  4. XOFIGO [Suspect]
     Active Substance: RADIUM RA-223 DICHLORIDE
     Indication: PROSTATE CANCER STAGE IV
     Dosage: UNK
     Route: 042
     Dates: start: 20160811, end: 20160811
  5. JANUVIA [Concomitant]
     Active Substance: SITAGLIPTIN PHOSPHATE
     Indication: DIABETES MELLITUS
     Dosage: 500 MG, BID
     Route: 048
     Dates: start: 20130211
  6. ZOLADEX [Concomitant]
     Active Substance: GOSERELIN ACETATE
     Indication: PROSTATE CANCER
     Dosage: UNK
     Dates: start: 2007, end: 2008
  7. JANUMET [Concomitant]
     Active Substance: METFORMIN HYDROCHLORIDE\SITAGLIPTIN PHOSPHATE
     Dosage: 500 MG, BID
     Route: 048
     Dates: start: 20130211
  8. XOFIGO [Suspect]
     Active Substance: RADIUM RA-223 DICHLORIDE
     Indication: PROSTATE CANCER STAGE IV
     Dosage: UNK
     Route: 042
     Dates: start: 20160407, end: 20160407
  9. XOFIGO [Suspect]
     Active Substance: RADIUM RA-223 DICHLORIDE
     Indication: METASTASES TO BONE
     Dosage: UNK
     Route: 042
     Dates: start: 20160512, end: 20160512
  10. XOFIGO [Suspect]
     Active Substance: RADIUM RA-223 DICHLORIDE
     Indication: PROSTATE CANCER STAGE IV
     Dosage: UNK
     Route: 042
     Dates: start: 20160609, end: 20160609
  11. ZOMETA [Concomitant]
     Active Substance: ZOLEDRONIC ACID
     Indication: PROSTATE CANCER
  12. CASODEX [Concomitant]
     Active Substance: BICALUTAMIDE
     Indication: PROSTATE CANCER
     Dosage: UNK
     Dates: start: 2007

REACTIONS (26)
  - Haemoglobin decreased [Not Recovered/Not Resolved]
  - Back pain [None]
  - Hernia pain [None]
  - Anxiety [None]
  - Pulmonary mass [None]
  - Bone pain [None]
  - Vomiting [None]
  - Prostate cancer [None]
  - Abdominal hernia [None]
  - Blood creatinine increased [None]
  - Nephropathy toxic [None]
  - Hydronephrosis [None]
  - Pollakiuria [None]
  - Anaemia [None]
  - Melaena [Not Recovered/Not Resolved]
  - Umbilical hernia [None]
  - Insomnia [None]
  - Influenza [None]
  - Fatigue [None]
  - Obstructive uropathy [None]
  - Arthralgia [None]
  - Blood pressure systolic increased [None]
  - Prostatic fibrosis [None]
  - Nausea [Recovered/Resolved]
  - Acute kidney injury [None]
  - Upper respiratory tract infection [None]

NARRATIVE: CASE EVENT DATE: 20160726
